FAERS Safety Report 6181497-6 (Version None)
Quarter: 2009Q2

REPORT INFORMATION
  Report Type: 
  Country: None (occurrence: None)
  Receive Date: 20090504
  Receipt Date: 20081211
  Transmission Date: 20091009
  Serious: Yes (Other)
  Sender: FDA-Public Use
  Company Number: ADR3012008 (ARROW GENERICS REF. #2008AG2404

PATIENT
  Sex: Female

DRUGS (2)
  1. ALENDRONATE SODIUM [Suspect]
     Dates: start: 20060101
  2. UNSPECIFIED MEDIATIONS [Concomitant]

REACTIONS (9)
  - ABNORMAL BEHAVIOUR [None]
  - CONTUSION [None]
  - DYSKINESIA [None]
  - DYSPHAGIA [None]
  - FATIGUE [None]
  - INNER EAR DISORDER [None]
  - MUSCLE SPASMS [None]
  - PRODUCT QUALITY ISSUE [None]
  - TRISMUS [None]
